FAERS Safety Report 24936901 (Version 8)
Quarter: 2025Q3

REPORT INFORMATION
  Report Type: Report from Study
  Country: US (occurrence: US)
  Receive Date: 20250206
  Receipt Date: 20250912
  Transmission Date: 20251021
  Serious: Yes (Other)
  Sender: SUNOVION
  Company Number: US-SUMITOMO PHARMA SWITZERLAND GMBH-2025SPA000997

PATIENT
  Age: 74 Year
  Sex: Male

DRUGS (3)
  1. ORGOVYX [Suspect]
     Active Substance: RELUGOLIX
     Indication: Prostate cancer
     Route: 048
     Dates: start: 20250116, end: 20250116
  2. ORGOVYX [Suspect]
     Active Substance: RELUGOLIX
     Dosage: 120 MG, QD
     Route: 048
     Dates: start: 20250117
  3. BENADRYL [Suspect]
     Active Substance: DIPHENHYDRAMINE HYDROCHLORIDE
     Indication: Sinus disorder

REACTIONS (16)
  - Rheumatoid arthritis [Unknown]
  - Nocturia [Unknown]
  - Seasonal allergy [Not Recovered/Not Resolved]
  - Drug hypersensitivity [Unknown]
  - Blood testosterone abnormal [Unknown]
  - Groin pain [Unknown]
  - Sinus disorder [Unknown]
  - Somnolence [Unknown]
  - Dermatitis contact [Unknown]
  - Arthralgia [Unknown]
  - Back pain [Unknown]
  - Hot flush [Not Recovered/Not Resolved]
  - Asthenia [Unknown]
  - Fatigue [Unknown]
  - Urticaria [Unknown]
  - Hyperhidrosis [Unknown]
